FAERS Safety Report 10177026 (Version 2)
Quarter: 2014Q3

REPORT INFORMATION
  Report Type: Report from Study
  Country: JP (occurrence: JP)
  Receive Date: 20140516
  Receipt Date: 20140827
  Transmission Date: 20150326
  Serious: No
  Sender: FDA-Public Use
  Company Number: JP-ABBVIE-14P-087-1236112-00

PATIENT
  Age: 36 Year
  Sex: Male
  Weight: 48.2 kg

DRUGS (13)
  1. HUMIRA [Suspect]
     Active Substance: ADALIMUMAB
     Indication: BEHCET^S SYNDROME
     Route: 058
     Dates: start: 20130716, end: 20130716
  2. HUMIRA [Suspect]
     Active Substance: ADALIMUMAB
     Route: 058
     Dates: start: 20130813
  3. CICLOSPORIN [Concomitant]
     Active Substance: CYCLOSPORINE
     Indication: BEHCET^S SYNDROME
     Route: 048
     Dates: start: 20130626, end: 20130812
  4. PREDNISOLONE. [Concomitant]
     Active Substance: PREDNISOLONE
     Indication: BEHCET^S SYNDROME
     Route: 048
     Dates: start: 20130704, end: 20130716
  5. CICLOSPORIN [Concomitant]
     Active Substance: CYCLOSPORINE
     Dates: start: 20130827, end: 20130909
  6. CICLOSPORIN [Concomitant]
     Active Substance: CYCLOSPORINE
     Dates: start: 20130910, end: 20130927
  7. PREDNISOLONE. [Concomitant]
     Active Substance: PREDNISOLONE
     Dates: start: 20130717, end: 20130723
  8. HUMIRA [Suspect]
     Active Substance: ADALIMUMAB
     Route: 058
     Dates: start: 20130730, end: 20130730
  9. LANSOPRAZOLE. [Concomitant]
     Active Substance: LANSOPRAZOLE
     Indication: PRODUCT USED FOR UNKNOWN INDICATION
     Route: 048
     Dates: start: 20130703
  10. PREDNISOLONE. [Concomitant]
     Active Substance: PREDNISOLONE
     Dates: start: 20130731, end: 20130812
  11. CICLOSPORIN [Concomitant]
     Active Substance: CYCLOSPORINE
     Dates: start: 20130928, end: 20131022
  12. PREDNISOLONE. [Concomitant]
     Active Substance: PREDNISOLONE
     Dates: start: 20130724, end: 20130730
  13. CICLOSPORIN [Concomitant]
     Active Substance: CYCLOSPORINE
     Dates: start: 20130813, end: 20130826

REACTIONS (1)
  - Colon adenoma [Recovered/Resolved]

NARRATIVE: CASE EVENT DATE: 20140320
